FAERS Safety Report 6228253-8 (Version None)
Quarter: 2009Q2

REPORT INFORMATION
  Report Type: 
  Country: None (occurrence: None)
  Receive Date: 20090612
  Receipt Date: 20090602
  Transmission Date: 20091009
  Serious: Yes (Other)
  Sender: FDA-Public Use
  Company Number: PHHO2007BR17866

PATIENT
  Sex: Female

DRUGS (4)
  1. DIOVAN HCT [Suspect]
     Indication: HYPERTENSION
     Dosage: 160 / 12.5 MG DAILY
     Route: 048
     Dates: start: 20071019
  2. GALVUS [Suspect]
     Indication: DIABETES PROPHYLAXIS
     Dosage: 100 MG, QD
     Route: 048
     Dates: start: 20071019
  3. MODURETIC 5-50 [Concomitant]
     Indication: DIURETIC THERAPY
     Dosage: 1 DF, QD
     Route: 048
  4. PURAN T4 [Concomitant]
     Indication: HYPOTHYROIDISM
     Dosage: 1X/MORNING FASTING
     Route: 048

REACTIONS (10)
  - AREFLEXIA [None]
  - ARTHRALGIA [None]
  - ARTHROPATHY [None]
  - MONOPLEGIA [None]
  - NEUROPATHY PERIPHERAL [None]
  - PARAESTHESIA [None]
  - PRURITUS [None]
  - SOMNOLENCE [None]
  - SPINAL DISORDER [None]
  - URTICARIA [None]
